FAERS Safety Report 6263401-5 (Version None)
Quarter: 2009Q3

REPORT INFORMATION
  Report Type: 
  Country: None (occurrence: None)
  Receive Date: 20090710
  Receipt Date: 20081028
  Transmission Date: 20100115
  Serious: No
  Sender: FDA-Public Use
  Company Number: A0754067A

PATIENT
  Age: 83 Year
  Sex: Male

DRUGS (6)
  1. FLOVENT [Suspect]
     Indication: CHRONIC OBSTRUCTIVE PULMONARY DISEASE
     Dosage: 220MG TWICE PER DAY
     Route: 055
     Dates: start: 20080901
  2. ALBUTEROL [Concomitant]
  3. SPIRIVA [Concomitant]
  4. VITAMINS [Concomitant]
  5. HEART MEDICATION [Concomitant]
  6. FLONASE [Concomitant]

REACTIONS (1)
  - PRURITUS [None]
